FAERS Safety Report 5284288-3 (Version None)
Quarter: 2007Q1

REPORT INFORMATION
  Report Type: 
  Country: None (occurrence: None)
  Receive Date: 20070321
  Receipt Date: 20070308
  Transmission Date: 20070707
  Serious: Yes (Hospitalization, Other)
  Sender: FDA-Public Use
  Company Number: THYM-11349

PATIENT
  Age: 55 Year
  Sex: Male

DRUGS (7)
  1. THYMOGLOBULIN [Suspect]
     Indication: PANCREAS TRANSPLANT
     Dates: start: 20070218, end: 20070222
  2. MYCELEX [Concomitant]
  3. VALACYCLOVIR [Concomitant]
  4. LISINOPRIL [Concomitant]
  5. PROGRAF [Concomitant]
  6. CELLCEPT [Concomitant]
  7. PREDNISONE TAB [Concomitant]

REACTIONS (1)
  - SERUM SICKNESS [None]
